FAERS Safety Report 15366964 (Version 2)
Quarter: 2018Q4

REPORT INFORMATION
  Report Type: Spontaneous
  Country: JP (occurrence: JP)
  Receive Date: 20180910
  Receipt Date: 20181019
  Transmission Date: 20190204
  Serious: Yes (Life-Threatening, Hospitalization, Disabling, Other)
  Sender: FDA-Public Use
  Company Number: JP-PFIZER INC-2018357192

PATIENT
  Age: 73 Year
  Sex: Male

DRUGS (6)
  1. SUTENT [Suspect]
     Active Substance: SUNITINIB MALATE
     Dosage: 2-WEEK 25-MG DAILY TREATMENT AND 1-WEEK DRUG REST PERIOD
     Route: 048
     Dates: start: 201707, end: 201803
  2. SUTENT [Suspect]
     Active Substance: SUNITINIB MALATE
     Dosage: 2-WEEK 25-MG DAILY TREATMENT AND 1-WEEK DRUG REST PERIOD
     Dates: start: 20180509, end: 20180529
  3. SUTENT [Suspect]
     Active Substance: SUNITINIB MALATE
     Dosage: 37.5 MG DAILY AND 25 MG DAILY GIVEN ALTERNATELY FOR 2 WEEKS FOLLOWED BY A 1-WEEK DRUG REST PERIOD
     Route: 048
     Dates: start: 20180530
  4. SUTENT [Suspect]
     Active Substance: SUNITINIB MALATE
     Indication: RENAL CANCER METASTATIC
     Dosage: 37.5 MG DAILY FOR 2 WEEKS AND THEN 25 MG DAILY FOR 2 WEEKS FOLLOWED BY A 2-WEEK DRUG REST PERIOD.
     Route: 048
     Dates: start: 201309, end: 201701
  5. SUTENT [Suspect]
     Active Substance: SUNITINIB MALATE
     Dosage: 25 MG DAILY FOR 2 WEEKS FOLLOWED BY A 1-WEEK DRUG REST PERIOD
     Route: 048
     Dates: start: 201701, end: 201702
  6. SUTENT [Suspect]
     Active Substance: SUNITINIB MALATE
     Dosage: 25 MG DAILY FOR 1 WEEK FOLLOWED BY A 1-WEEK DRUG REST PERIOD
     Route: 048
     Dates: start: 201702, end: 201704

REACTIONS (5)
  - Anaemia [Unknown]
  - Tumour haemorrhage [Unknown]
  - Gastric ulcer haemorrhage [Recovered/Resolved]
  - Blood creatinine increased [Unknown]
  - Renal impairment [Not Recovered/Not Resolved]

NARRATIVE: CASE EVENT DATE: 201704
